FAERS Safety Report 6046904-8 (Version None)
Quarter: 2009Q1

REPORT INFORMATION
  Report Type: 
  Country: None (occurrence: None)
  Receive Date: 20090122
  Receipt Date: 20090119
  Transmission Date: 20090719
  Serious: Yes (Hospitalization)
  Sender: FDA-Public Use
  Company Number: D0060197A

PATIENT
  Age: 79 Year
  Sex: Female
  Weight: 80 kg

DRUGS (3)
  1. CEFUROXIME [Suspect]
     Indication: TRACHEOSTOMY INFECTION
     Route: 042
     Dates: start: 20081219, end: 20081224
  2. UNACID [Suspect]
     Indication: TRACHEOSTOMY INFECTION
     Dosage: 9G PER DAY
     Route: 042
     Dates: start: 20081219, end: 20081221
  3. MERONEM [Suspect]
     Indication: TRACHEOSTOMY INFECTION
     Dosage: 3G PER DAY
     Route: 042
     Dates: start: 20081223, end: 20081224

REACTIONS (2)
  - RASH MACULO-PAPULAR [None]
  - VASCULITIS [None]
